FAERS Safety Report 7545405-5 (Version None)
Quarter: 2011Q2

REPORT INFORMATION
  Report Type: 
  Country: None (occurrence: None)
  Receive Date: 20110613
  Receipt Date: 20110613
  Transmission Date: 20111010
  Serious: No
  Sender: FDA-Public Use
  Company Number: None

PATIENT
  Age: 12 Year
  Sex: Female
  Weight: 35.9 kg

DRUGS (3)
  1. CIPROFLOXACIN [Suspect]
     Indication: TYMPANIC MEMBRANE PERFORATION
     Dosage: CIPROFLOXACIN 500MG BID PO
     Route: 048
     Dates: start: 20110520, end: 20110524
  2. CIPROFLOXACIN [Suspect]
     Indication: PSEUDOMONAS INFECTION
     Dosage: CIPROFLOXACIN 500MG BID PO
     Route: 048
     Dates: start: 20110520, end: 20110524
  3. CIPROFLOXACIN [Suspect]
     Indication: OTITIS MEDIA
     Dosage: CIPROFLOXACIN 500MG BID PO
     Route: 048
     Dates: start: 20110520, end: 20110524

REACTIONS (2)
  - TENDONITIS [None]
  - GAIT DISTURBANCE [None]
